FAERS Safety Report 20258679 (Version 1)
Quarter: 2021Q4

REPORT INFORMATION
  Report Type: Spontaneous
  Country: ES (occurrence: ES)
  Receive Date: 20211230
  Receipt Date: 20211230
  Transmission Date: 20220303
  Serious: Yes (Other)
  Sender: FDA-Public Use
  Company Number: ES-AMGEN-ESPSP2021191523

PATIENT
  Age: 44 Year
  Sex: Male

DRUGS (1)
  1. ADALIMUMAB [Suspect]
     Active Substance: ADALIMUMAB
     Indication: Crohn^s disease
     Dosage: 80 MILLIGRAM, QWK
     Route: 058

REACTIONS (3)
  - Neuroendocrine carcinoma [Unknown]
  - Adenocarcinoma [Unknown]
  - Therapeutic product effect incomplete [Unknown]
